FAERS Safety Report 8879790 (Version 3)
Quarter: 2013Q1

REPORT INFORMATION
  Report Type: Report from Study
  Country: JP (occurrence: JP)
  Receive Date: 20121101
  Receipt Date: 20130117
  Transmission Date: 20140127
  Serious: Yes (Hospitalization)
  Sender: FDA-Public Use
  Company Number: JP-VERTEX PHARMACEUTICAL INC.-2012-023819

PATIENT
  Age: 65 Year
  Sex: Female

DRUGS (9)
  1. VX-950 (TELAPREVIR) [Suspect]
     Indication: CHRONIC HEPATITIS C
     Dosage: 2250 MG, QD
     Route: 048
     Dates: start: 20120418, end: 20120418
  2. VX-950 (TELAPREVIR) [Suspect]
     Dosage: 1500 MG, QD
     Route: 048
     Dates: start: 20120419, end: 20120711
  3. PEGINTERFERON ALFA-2B [Suspect]
     Indication: CHRONIC HEPATITIS C
     Dosage: 1.5 ?G/KG, QW
     Route: 058
     Dates: start: 20120418, end: 20120725
  4. REBETOL [Suspect]
     Indication: CHRONIC HEPATITIS C
     Dosage: 400 MG, QD
     Route: 048
     Dates: start: 20120418
  5. REBETOL [Suspect]
     Dosage: 600 MG, QD
     Route: 048
  6. REBETOL [Suspect]
     Dosage: 400 MG, QD
     Route: 048
     Dates: start: 20120801, end: 20121002
  7. NAUZELIN [Concomitant]
     Dosage: 10 MG, QD
     Route: 048
     Dates: start: 20120418
  8. CALONAL [Concomitant]
     Dosage: 200 MG, PRN
     Route: 048
     Dates: start: 20120418
  9. FERON [Concomitant]
     Dosage: 600 ?G, QD
     Route: 042
     Dates: start: 20120801, end: 20121001

REACTIONS (1)
  - Depression [Recovered/Resolved]
